FAERS Safety Report 9867802 (Version 1)
Quarter: 2014Q1

REPORT INFORMATION
  Report Type: Spontaneous
  Country: AU (occurrence: AU)
  Receive Date: 20140204
  Receipt Date: 20140204
  Transmission Date: 20141002
  Serious: Yes (Death)
  Sender: FDA-Public Use
  Company Number: AU-BAXTER-2014BAX004949

PATIENT
  Age: 77 Year
  Sex: Female

DRUGS (1)
  1. DIANEAL LOW CALCIUM WITH 1.5 PERCENT W/V GLUCOSE PERITONEAL DIALYSIS S [Suspect]
     Indication: PERITONEAL DIALYSIS
     Route: 033

REACTIONS (1)
  - Death [Fatal]
